FAERS Safety Report 7773174-2 (Version None)
Quarter: 2011Q3

REPORT INFORMATION
  Report Type: 
  Country: None (occurrence: None)
  Receive Date: 20110922
  Receipt Date: 20100812
  Transmission Date: 20111222
  Serious: No
  Sender: FDA-Public Use
  Company Number: US-ASTRAZENECA-2010SE38011

PATIENT
  Age: 36 Year
  Sex: Female

DRUGS (2)
  1. SEROQUEL XR [Suspect]
     Indication: BIPOLAR DISORDER
     Dosage: 50 MG IN AM AND 200 MG AT BED TIME
     Route: 048
  2. SEROQUEL XR [Suspect]
     Route: 048

REACTIONS (2)
  - INCONTINENCE [None]
  - DIARRHOEA [None]
